FAERS Safety Report 5829035-9 (Version None)
Quarter: 2008Q3

REPORT INFORMATION
  Report Type: 
  Country: None (occurrence: None)
  Receive Date: 20080731
  Receipt Date: 20070809
  Transmission Date: 20090109
  Serious: Yes (Hospitalization)
  Sender: FDA-Public Use
  Company Number: US-BRISTOL-MYERS SQUIBB COMPANY-13859483

PATIENT
  Age: 52 Year
  Sex: Male

DRUGS (1)
  1. TEQUIN [Suspect]

REACTIONS (1)
  - TENDON PAIN [None]
